FAERS Safety Report 14371450 (Version 3)
Quarter: 2018Q1

REPORT INFORMATION
  Report Type: Spontaneous
  Country: BR (occurrence: BR)
  Receive Date: 20180110
  Receipt Date: 20180309
  Transmission Date: 20180509
  Serious: Yes (Death, Hospitalization, Other)
  Sender: FDA-Public Use
  Company Number: BR-AUROBINDO-AUR-APL-2018-001451

PATIENT
  Age: 73 Year
  Sex: Male
  Weight: 75 kg

DRUGS (13)
  1. NORADRENALINE                      /00127501/ [Concomitant]
     Active Substance: NOREPINEPHRINE
     Indication: VASOPRESSIVE THERAPY
     Dosage: 20 ML + SALINE 0.9 % 80 ML
     Route: 042
     Dates: start: 20171121, end: 20171122
  2. HEPARIN [Concomitant]
     Active Substance: HEPARIN SODIUM
     Indication: ANTICOAGULANT THERAPY
     Dosage: 500 ?L, 3 TIMES A DAY
     Route: 058
     Dates: start: 20171116, end: 20171122
  3. DIPYRONE [Concomitant]
     Active Substance: DIPYRONE
     Indication: ANALGESIC THERAPY
     Dosage: 1 G, AS NECESSARY
     Route: 042
     Dates: start: 20171120, end: 20171122
  4. RANITIDINE. [Concomitant]
     Active Substance: RANITIDINE
     Indication: ULCER
     Dosage: 1 G, TWO TIMES A DAY
     Route: 042
     Dates: start: 20171121, end: 20171122
  5. BROMOPRIDE [Concomitant]
     Active Substance: BROMOPRIDE
     Indication: ANTIEMETIC SUPPORTIVE CARE
     Dosage: 10 MG, 8/8H
     Route: 042
     Dates: start: 20171121, end: 20171122
  6. CLOPIDOGREL [Suspect]
     Active Substance: CLOPIDOGREL BISULFATE
     Indication: ANTIPLATELET THERAPY
     Dosage: 75 MG, DAILY
     Route: 048
     Dates: start: 20171116, end: 20171122
  7. ACETYLSALICYLIC ACID [Concomitant]
     Active Substance: ASPIRIN
     Indication: ANTIPLATELET THERAPY
     Dosage: 100 MG, UNK
     Route: 048
     Dates: start: 20171116, end: 20171120
  8. MIDAZOLAM [Concomitant]
     Active Substance: MIDAZOLAM HYDROCHLORIDE
     Indication: SEDATIVE THERAPY
     Dosage: 30 ML + SALINE 0.9 % 120 ML
     Route: 042
     Dates: start: 20171121, end: 20171122
  9. DIAZEPAM. [Concomitant]
     Active Substance: DIAZEPAM
     Indication: ANXIOLYTIC THERAPY
     Dosage: 10 MG, UNK
     Route: 048
     Dates: start: 20171117, end: 20171119
  10. VANCOMYCIN [Concomitant]
     Active Substance: VANCOMYCIN
     Indication: ANTIBIOTIC THERAPY
     Dosage: 1 G, 3 TIMES A DAY
     Route: 042
     Dates: start: 20171121, end: 20171122
  11. LOSARTAN. [Concomitant]
     Active Substance: LOSARTAN
     Indication: HYPERTENSION
     Dosage: 50 MG, TWO TIMES A DAY
     Route: 048
     Dates: start: 20171116, end: 20171120
  12. AMLODIPINE [Concomitant]
     Active Substance: AMLODIPINE BESYLATE
     Indication: HYPERTENSION
     Dosage: 10 MG, UNK
     Route: 048
     Dates: start: 20171117, end: 20171119
  13. MEROPENEM. [Concomitant]
     Active Substance: MEROPENEM
     Indication: ANTIBIOTIC THERAPY
     Dosage: 1 G, 3 TIMES A DAY
     Route: 042
     Dates: start: 20171121, end: 20171122

REACTIONS (4)
  - Cardio-respiratory arrest [Fatal]
  - Vascular stent thrombosis [Fatal]
  - Dyspnoea [Unknown]
  - Hypertension [Unknown]

NARRATIVE: CASE EVENT DATE: 20171116
